FAERS Safety Report 6039546-1 (Version None)
Quarter: 2009Q1

REPORT INFORMATION
  Report Type: 
  Country: None (occurrence: None)
  Receive Date: 20090116
  Receipt Date: 20090114
  Transmission Date: 20090719
  Serious: No
  Sender: FDA-Public Use
  Company Number: CA-JNJFOC-20081204103

PATIENT
  Age: 37 Year
  Sex: Female

DRUGS (9)
  1. DURAGESIC-100 [Suspect]
     Indication: PAIN
     Route: 062
  2. CIPRALEX [Concomitant]
     Indication: DEPRESSION
  3. LYRICA [Concomitant]
     Indication: PAIN
  4. CESAMET [Concomitant]
     Indication: PAIN
  5. AMITRIPTYLINE HCL [Concomitant]
     Indication: PAIN
  6. AMITRIPTYLINE HCL [Concomitant]
     Indication: SLEEP DISORDER
  7. FUROSEMIDE [Concomitant]
     Indication: DRUG USE FOR UNKNOWN INDICATION
  8. HYDROMORPHONE HCL [Concomitant]
     Indication: PAIN
  9. ZOPICLONE [Concomitant]
     Indication: SLEEP DISORDER
     Dosage: AS NEEDED

REACTIONS (3)
  - DRUG INEFFECTIVE [None]
  - PRODUCT QUALITY ISSUE [None]
  - WRONG TECHNIQUE IN DRUG USAGE PROCESS [None]
